FAERS Safety Report 5127917-7 (Version None)
Quarter: 2006Q4

REPORT INFORMATION
  Report Type: 
  Country: None (occurrence: None)
  Receive Date: 20061013
  Receipt Date: 20061013
  Transmission Date: 20070319
  Serious: No
  Sender: FDA-Public Use
  Company Number: None

PATIENT
  Age: 25 Year
  Sex: Female
  Weight: 54.4316 kg

DRUGS (2)
  1. SENSORCAINE [Suspect]
     Indication: CAESAREAN SECTION
     Dosage: 1.2 ML IT
     Route: 037
     Dates: start: 20061010, end: 20061010
  2. SENSORCAINE [Suspect]
     Indication: SPINAL ANAESTHESIA
     Dosage: 1.2 ML IT
     Route: 037
     Dates: start: 20061010, end: 20061010

REACTIONS (2)
  - ANAESTHETIC COMPLICATION [None]
  - CAESAREAN SECTION [None]
